FAERS Safety Report 8541311-8 (Version None)
Quarter: 2012Q3

REPORT INFORMATION
  Report Type: 
  Country: None (occurrence: None)
  Receive Date: 20120726
  Receipt Date: 20120719
  Transmission Date: 20120928
  Serious: Yes (Other)
  Sender: FDA-Public Use
  Company Number: ES-PFIZER INC-2012174587

PATIENT
  Age: 57 Year
  Sex: Male
  Weight: 115 kg

DRUGS (4)
  1. SIMVASTATIN [Concomitant]
  2. CELEBREX [Suspect]
     Indication: OSTEOARTHRITIS
     Dosage: 200 MG (SIX CAPSULES) PER DAY
     Route: 048
     Dates: start: 20120306, end: 20120625
  3. ENALAPRIL [Concomitant]
  4. METFORMIN [Concomitant]

REACTIONS (1)
  - DERMATITIS PSORIASIFORM [None]
